FAERS Safety Report 24074321 (Version 1)
Quarter: 2024Q3

REPORT INFORMATION
  Report Type: Spontaneous
  Country: FR (occurrence: FR)
  Receive Date: 20240710
  Receipt Date: 20240710
  Transmission Date: 20241017
  Serious: Yes (Death)
  Sender: HILL DERM
  Company Number: FR-Hill Dermaceuticals, Inc.-2159002

PATIENT
  Age: 68 Year
  Sex: Male
  Weight: 79.50 kg

DRUGS (8)
  1. FLUOROURACIL [Suspect]
     Active Substance: FLUOROURACIL
     Indication: Tongue neoplasm
     Route: 065
     Dates: start: 20230327, end: 20230401
  2. DOCETAXEL [Suspect]
     Active Substance: DOCETAXEL\DOCETAXEL ANHYDROUS
     Dates: start: 20230327, end: 20230327
  3. DAPAGLIFLOZIN [Concomitant]
     Active Substance: DAPAGLIFLOZIN
     Route: 048
  4. LANSOPRAZOLE [Concomitant]
     Active Substance: LANSOPRAZOLE
     Route: 048
  5. Cosimprel (Bisoprolol fumarate, Perindopril Arginine) [Concomitant]
     Route: 048
  6. XARELTO [Concomitant]
     Active Substance: RIVAROXABAN
     Route: 048
  7. FUROSEMIDE [Concomitant]
     Active Substance: FUROSEMIDE
     Route: 048
  8. CISPLATIN [Suspect]
     Active Substance: CISPLATIN
     Dates: start: 20230327, end: 20230401

REACTIONS (2)
  - Gastrointestinal necrosis [Fatal]
  - Product use in unapproved indication [Unknown]

NARRATIVE: CASE EVENT DATE: 20230327
